FAERS Safety Report 5928674-4 (Version None)
Quarter: 2008Q4

REPORT INFORMATION
  Report Type: 
  Country: None (occurrence: None)
  Receive Date: 20081023
  Receipt Date: 20081021
  Transmission Date: 20090506
  Serious: Yes (Hospitalization)
  Sender: FDA-Public Use
  Company Number: US-ROXANE LABORATORIES, INC.-2008-BP-03341RO

PATIENT
  Sex: Female

DRUGS (13)
  1. PREDNISONE TAB [Suspect]
     Indication: RENAL TRANSPLANT
     Dates: start: 20020820
  2. BELATACEPT [Suspect]
     Indication: RENAL TRANSPLANT
     Route: 042
     Dates: start: 20020820
  3. CELLCEPT [Suspect]
     Indication: RENAL TRANSPLANT
     Dates: start: 20020820
  4. MULTI-VITAMIN [Concomitant]
     Dates: start: 20020821
  5. NORVASC [Concomitant]
     Dates: start: 20021021
  6. CALCIUM [Concomitant]
     Dates: start: 20040205
  7. TRAZODONE HCL [Concomitant]
     Dates: start: 20050104
  8. IMODIUM [Concomitant]
     Dates: start: 20051013
  9. VASOTEC [Concomitant]
     Dates: start: 20061108
  10. LASIX [Concomitant]
     Dates: start: 20071204, end: 20080212
  11. VALCYTE [Concomitant]
     Dates: start: 20071217
  12. PEPCID [Concomitant]
     Dates: start: 20080108
  13. COUMADIN [Concomitant]
     Dates: start: 20071221

REACTIONS (1)
  - PNEUMONIA STREPTOCOCCAL [None]
